FAERS Safety Report 16972271 (Version 1)
Quarter: 2019Q4

REPORT INFORMATION
  Report Type: Spontaneous
  Country: US (occurrence: US)
  Receive Date: 20191029
  Receipt Date: 20191029
  Transmission Date: 20200122
  Serious: No
  Sender: FDA-Public Use
  Company Number: US-TEVA-2019-US-1130486

PATIENT
  Age: 21 Year
  Sex: Female

DRUGS (1)
  1. AVIANE [Suspect]
     Active Substance: ETHINYL ESTRADIOL\LEVONORGESTREL
     Route: 065

REACTIONS (3)
  - Anxiety [Unknown]
  - Depression [Unknown]
  - Dizziness [Unknown]
